FAERS Safety Report 8479658-6 (Version None)
Quarter: 2012Q2

REPORT INFORMATION
  Report Type: 
  Country: None (occurrence: None)
  Receive Date: 20120629
  Receipt Date: 20120626
  Transmission Date: 20120825
  Serious: Yes (Hospitalization, Other)
  Sender: FDA-Public Use
  Company Number: GB-TEVA-345641USA

PATIENT
  Sex: Male

DRUGS (3)
  1. TREANDA [Suspect]
     Route: 042
  2. PREDNISONE TAB [Suspect]
  3. THALIDOMIDE [Suspect]

REACTIONS (2)
  - BLOOD POTASSIUM INCREASED [None]
  - NEUTROPENIC SEPSIS [None]
